FAERS Safety Report 25665854 (Version 1)
Quarter: 2025Q3

REPORT INFORMATION
  Report Type: Spontaneous
  Country: US (occurrence: US)
  Receive Date: 20250811
  Receipt Date: 20250811
  Transmission Date: 20251020
  Serious: No
  Sender: CALLIDITAS THERAPEUTICS AB
  Company Number: US-Calliditas-2025CAL02311

PATIENT
  Age: 27 Year
  Sex: Female

DRUGS (4)
  1. TARPEYO [Suspect]
     Active Substance: BUDESONIDE
     Indication: IgA nephropathy
     Route: 048
     Dates: start: 20250318
  2. LISINOPRIL [Concomitant]
     Active Substance: LISINOPRIL
  3. COREGAN PLUS [Concomitant]
  4. AMLODIPINE [Concomitant]
     Active Substance: AMLODIPINE BESYLATE

REACTIONS (3)
  - Menstruation irregular [Unknown]
  - Intermenstrual bleeding [Unknown]
  - Peripheral swelling [Unknown]
